FAERS Safety Report 10055141 (Version 2)
Quarter: 2014Q2

REPORT INFORMATION
  Report Type: Spontaneous
  Country: US (occurrence: US)
  Receive Date: 20140402
  Receipt Date: 20140625
  Transmission Date: 20141212
  Serious: No
  Sender: FDA-Public Use
  Company Number: US-SA-2014SA023653

PATIENT
  Age: 49 Year
  Sex: Female
  Weight: 86.18 kg

DRUGS (7)
  1. AUBAGIO [Suspect]
     Indication: RELAPSING-REMITTING MULTIPLE SCLEROSIS
     Route: 065
     Dates: start: 20140206, end: 20140303
  2. AUBAGIO [Suspect]
     Indication: RELAPSING-REMITTING MULTIPLE SCLEROSIS
     Dates: start: 201404
  3. LEXAPRO [Concomitant]
     Indication: DEPRESSION
  4. FLEXERIL [Concomitant]
  5. LAMICTAL [Concomitant]
     Indication: DYSAESTHESIA
  6. HYDROCHLOROTHIAZIDE [Concomitant]
     Indication: POLYURIA
  7. STRATTERA [Concomitant]
     Indication: ATTENTION DEFICIT/HYPERACTIVITY DISORDER

REACTIONS (1)
  - Burning sensation [Recovered/Resolved]
